FAERS Safety Report 10448329 (Version 1)
Quarter: 2014Q3

REPORT INFORMATION
  Report Type: Spontaneous
  Country: FR (occurrence: FR)
  Receive Date: 20140911
  Receipt Date: 20140911
  Transmission Date: 20150326
  Serious: Yes (Death, Hospitalization)
  Sender: FDA-Public Use
  Company Number: PHHY2014FR117552

PATIENT
  Sex: Female

DRUGS (1)
  1. PARACETAMOL [Suspect]
     Active Substance: ACETAMINOPHEN

REACTIONS (5)
  - Colon injury [Unknown]
  - Coma [Unknown]
  - Lactic acidosis [Fatal]
  - Acute hepatic failure [Unknown]
  - Toxicity to various agents [Unknown]
